FAERS Safety Report 16592226 (Version 2)
Quarter: 2019Q3

REPORT INFORMATION
  Report Type: Spontaneous
  Country: US (occurrence: US)
  Receive Date: 20190718
  Receipt Date: 20190725
  Transmission Date: 20191004
  Serious: Yes (Other)
  Sender: FDA-Public Use
  Company Number: US-PFIZER INC-2019304664

PATIENT
  Age: 2 Month
  Sex: Female

DRUGS (1)
  1. BICILLIN C-R 900/300 [Suspect]
     Active Substance: PENICILLIN G BENZATHINE\PENICILLIN G PROCAINE
     Indication: RESPIRATORY TRACT INFECTION
     Dosage: (SUSPENSION), 0.6 MILLION OF IU IN 2 ML, GLUTEUS D)
     Route: 030
     Dates: start: 19641105

REACTIONS (2)
  - Incorrect route of product administration [Unknown]
  - Embolia cutis medicamentosa [Recovered/Resolved]

NARRATIVE: CASE EVENT DATE: 19641105
